FAERS Safety Report 17925835 (Version 2)
Quarter: 2020Q3

REPORT INFORMATION
  Report Type: Spontaneous
  Country: US (occurrence: US)
  Receive Date: 20200623
  Receipt Date: 20200723
  Transmission Date: 20201103
  Serious: Yes (Hospitalization, Other)
  Sender: FDA-Public Use
  Company Number: US-ALVOGEN-2020-ALVOGEN-108641

PATIENT
  Age: 16 Year
  Sex: Male

DRUGS (2)
  1. OXYCODONE [Suspect]
     Active Substance: OXYCODONE
     Indication: PRODUCT USED FOR UNKNOWN INDICATION
     Dosage: 3?4 FAKE OXYCODONE 10?325 MG PILLS
  2. FENTANYL. [Suspect]
     Active Substance: FENTANYL
     Indication: PRODUCT USED FOR UNKNOWN INDICATION

REACTIONS (8)
  - Blood creatine phosphokinase increased [Recovered/Resolved]
  - Intentional overdose [Recovering/Resolving]
  - Counterfeit product administered [Recovering/Resolving]
  - White matter lesion [Recovering/Resolving]
  - Basal ganglion degeneration [Not Recovered/Not Resolved]
  - Leukoencephalopathy [Recovering/Resolving]
  - Respiratory depression [Recovered/Resolved]
  - Unresponsive to stimuli [Recovered/Resolved]
